FAERS Safety Report 7532041-X (Version None)
Quarter: 2011Q2

REPORT INFORMATION
  Report Type: 
  Country: None (occurrence: None)
  Receive Date: 20110608
  Receipt Date: 20110526
  Transmission Date: 20111010
  Serious: Yes (Hospitalization, Other)
  Sender: FDA-Public Use
  Company Number: NO-SANOFI-AVENTIS-2011SA032984

PATIENT
  Sex: Male

DRUGS (8)
  1. ASPIRIN [Suspect]
     Indication: TYPE 2 DIABETES MELLITUS
     Route: 048
  2. LEVOTHYROXINE SODIUM [Concomitant]
     Dates: start: 20091205
  3. GLIMEPIRIDE [Suspect]
     Indication: TYPE 2 DIABETES MELLITUS
  4. METFORMIN HCL [Suspect]
     Indication: TYPE 2 DIABETES MELLITUS
  5. ORAL ANTIDIABETICS [Suspect]
     Indication: TYPE 2 DIABETES MELLITUS
  6. PLACEBO [Concomitant]
     Indication: TYPE 2 DIABETES MELLITUS
  7. AMLODIPINE [Concomitant]
     Dates: start: 20091203
  8. TEVETEN HCT [Concomitant]
     Dates: start: 20091203

REACTIONS (3)
  - AORTIC ANEURYSM [None]
  - MELAENA [None]
  - ANAEMIA [None]
